FAERS Safety Report 26145172 (Version 1)
Quarter: 2025Q4

REPORT INFORMATION
  Report Type: Spontaneous
  Country: JP (occurrence: JP)
  Receive Date: 20251211
  Receipt Date: 20251211
  Transmission Date: 20260118
  Serious: Yes (Other)
  Sender: BIOVITRUM
  Company Number: JP-BIOVITRUM-2025-JP-017261

PATIENT
  Age: 7 Decade
  Sex: Male

DRUGS (1)
  1. DOPTELET [Suspect]
     Active Substance: AVATROMBOPAG MALEATE
     Indication: Immune thrombocytopenia
     Dosage: ONCE PER DAY
     Route: 048
     Dates: start: 20251120

REACTIONS (1)
  - Pneumonia [Recovered/Resolved]
